FAERS Safety Report 7273755-9 (Version None)
Quarter: 2010Q4

REPORT INFORMATION
  Report Type: 
  Country: None (occurrence: None)
  Receive Date: 20101201
  Receipt Date: 20100730
  Transmission Date: 20110411
  Serious: Yes (Hospitalization)
  Sender: FDA-Public Use
  Company Number: 311102

PATIENT
  Age: 49 Year
  Sex: Female
  Weight: 64.4 kg

DRUGS (1)
  1. NOVOLOG [Suspect]
     Indication: TYPE 1 DIABETES MELLITUS
     Dosage: BOLUS, SUBCUTAN.-PUMP
     Route: 040
     Dates: start: 20010101

REACTIONS (1)
  - DIABETIC KETOACIDOSIS [None]
